FAERS Safety Report 7177757-2 (Version None)
Quarter: 2010Q4

REPORT INFORMATION
  Report Type: 
  Country: None (occurrence: None)
  Receive Date: 20101220
  Receipt Date: 20101216
  Transmission Date: 20110411
  Serious: Yes (Other)
  Sender: FDA-Public Use
  Company Number: GXKR2010DE14164

PATIENT
  Age: 51 Year
  Sex: Female

DRUGS (1)
  1. ENALAPRIL MALEATE [Suspect]
     Dosage: 10 MG, UNK
     Route: 048

REACTIONS (2)
  - OEDEMA PERIPHERAL [None]
  - PERICARDIAL EFFUSION [None]
